FAERS Safety Report 18846258 (Version 1)
Quarter: 2021Q1

REPORT INFORMATION
  Report Type: Report from Study
  Country: US (occurrence: US)
  Receive Date: 20210203
  Receipt Date: 20210203
  Transmission Date: 20210419
  Serious: No
  Sender: FDA-Public Use
  Company Number: US-EXELIXIS-CABO-20031014

PATIENT
  Sex: Male
  Weight: 129.25 kg

DRUGS (2)
  1. CABOMETYX [Suspect]
     Active Substance: CABOZANTINIB S-MALATE
     Indication: RENAL CELL CARCINOMA
     Dosage: 60 MG, QD
     Route: 048
     Dates: start: 202004
  2. CABOMETYX [Suspect]
     Active Substance: CABOZANTINIB S-MALATE
     Dosage: 30 MG, QD (HALF OF 60MG TABLET)
     Route: 048

REACTIONS (5)
  - Fatigue [Unknown]
  - Wrong technique in product usage process [Unknown]
  - Alopecia [Unknown]
  - Back pain [Unknown]
  - Stomatitis [Unknown]
